FAERS Safety Report 5165146-1 (Version None)
Quarter: 2006Q4

REPORT INFORMATION
  Report Type: 
  Country: None (occurrence: None)
  Receive Date: 20061127
  Receipt Date: 20061120
  Transmission Date: 20070319
  Serious: Yes (Death, Life-Threatening, Hospitalization)
  Sender: FDA-Public Use
  Company Number: CLOF-10326

PATIENT
  Age: 37 Year
  Sex: Female

DRUGS (11)
  1. CLOLAR [Suspect]
     Indication: ACUTE MYELOID LEUKAEMIA
     Dosage: 82.8 MG U/WK IV
     Route: 042
     Dates: start: 20060830, end: 20060903
  2. CLOLAR [Suspect]
     Indication: ACUTE MYELOID LEUKAEMIA
     Dosage: 82.8 MG U/WK IV
     Route: 042
     Dates: start: 20060830, end: 20060903
  3. CYTARABINE [Suspect]
     Indication: ACUTE MYELOID LEUKAEMIA
     Dosage: 1790 MG QD X 5 IV
     Route: 042
     Dates: start: 20060830, end: 20060903
  4. ACYCLOVIR [Concomitant]
  5. CASPOFUNGIN [Concomitant]
  6. NOVOLIN [Concomitant]
  7. LEVAQUIN [Concomitant]
  8. PROTONIX [Concomitant]
  9. VANCOMYCIN [Concomitant]
  10. VORICONAZOLE [Concomitant]
  11. BENADRYL [Concomitant]

REACTIONS (19)
  - ABDOMINAL PAIN [None]
  - AGITATION [None]
  - ANAL FISTULA [None]
  - BLOOD CULTURE POSITIVE [None]
  - ESCHERICHIA INFECTION [None]
  - GENERALISED OEDEMA [None]
  - HAEMODIALYSIS [None]
  - HYPOTENSION [None]
  - INSOMNIA [None]
  - LUNG INFILTRATION [None]
  - MULTI-ORGAN FAILURE [None]
  - NAUSEA [None]
  - PAIN [None]
  - PANCYTOPENIA [None]
  - PROCTALGIA [None]
  - PYREXIA [None]
  - RENAL FAILURE ACUTE [None]
  - TUMOUR LYSIS SYNDROME [None]
  - WHITE BLOOD CELL COUNT DECREASED [None]
